FAERS Safety Report 10632193 (Version 1)
Quarter: 2014Q4

REPORT INFORMATION
  Report Type: Spontaneous
  Country: GB (occurrence: None)
  Receive Date: 20141203
  Receipt Date: 20141203
  Transmission Date: 20150529
  Serious: Yes (Other)
  Sender: FDA-Public Use
  Company Number: CL-594-2014

PATIENT
  Age: 21 Year
  Sex: Female

DRUGS (2)
  1. KEPPRA [Suspect]
     Active Substance: LEVETIRACETAM
     Indication: EPILEPSY
     Route: 048
  2. METRONIDAZOLE. [Suspect]
     Active Substance: METRONIDAZOLE
     Indication: GINGIVITIS ULCERATIVE
     Route: 048
     Dates: start: 20140923, end: 20140929

REACTIONS (4)
  - Intentional self-injury [None]
  - Psychotic disorder [None]
  - Epilepsy [None]
  - Drug interaction [None]

NARRATIVE: CASE EVENT DATE: 20140924
